FAERS Safety Report 4795563-0 (Version None)
Quarter: 2005Q4

REPORT INFORMATION
  Report Type: 
  Country: None (occurrence: None)
  Receive Date: 20051007
  Receipt Date: 20051007
  Transmission Date: 20060501
  Serious: Yes (Life-Threatening, Hospitalization)
  Sender: FDA-Public Use
  Company Number: None

PATIENT
  Age: 60 Year
  Sex: Female
  Weight: 68 kg

DRUGS (9)
  1. PACLITAXEL [Suspect]
     Indication: INFLAMMATORY CARCINOMA OF THE BREAST
     Dosage: 80 MG/M2 -134MG-  WEEKLY    IV DRIP   (FIRST DOSE IN OVER A YEAR)
     Route: 041
  2. METOPROLOL [Concomitant]
  3. PRAVASTATIN [Concomitant]
  4. COZAAR [Concomitant]
  5. ACTONEL [Concomitant]
  6. CLONIDINE [Concomitant]
  7. ISMO [Concomitant]
  8. ASPIRIN [Concomitant]
  9. INSULIN [Concomitant]

REACTIONS (8)
  - CARDIAC ARREST [None]
  - DRUG HYPERSENSITIVITY [None]
  - ELECTROCARDIOGRAM T WAVE ABNORMAL [None]
  - HYPERTENSION [None]
  - LOSS OF CONSCIOUSNESS [None]
  - OXYGEN SATURATION DECREASED [None]
  - TROPONIN INCREASED [None]
  - VENTRICULAR TACHYCARDIA [None]
